FAERS Safety Report 6206480-3 (Version None)
Quarter: 2009Q2

REPORT INFORMATION
  Report Type: 
  Country: None (occurrence: None)
  Receive Date: 20090528
  Receipt Date: 20090520
  Transmission Date: 20091009
  Serious: Yes (Other)
  Sender: FDA-Public Use
  Company Number: PHHY2009DE19741

PATIENT
  Age: 82 Year
  Sex: Female

DRUGS (3)
  1. ZOMETA [Suspect]
     Indication: BRONCHIAL CARCINOMA
     Route: 042
  2. CALCIGEN [Concomitant]
  3. VITAPLUS [Concomitant]

REACTIONS (1)
  - OSTEONECROSIS [None]
